FAERS Safety Report 5396840-5 (Version None)
Quarter: 2007Q3

REPORT INFORMATION
  Report Type: 
  Country: None (occurrence: None)
  Receive Date: 20070725
  Receipt Date: 20060804
  Transmission Date: 20080115
  Serious: No
  Sender: FDA-Public Use
  Company Number: US-AMGEN-KDL190273

PATIENT
  Sex: Female

DRUGS (7)
  1. PROCRIT [Suspect]
     Indication: RENAL FAILURE CHRONIC
     Route: 058
     Dates: start: 20060803
  2. NORVASC [Concomitant]
  3. LISINOPRIL [Concomitant]
  4. LABETALOL HCL [Concomitant]
  5. LASIX [Concomitant]
  6. PRANDIN [Concomitant]
  7. ACTONEL [Concomitant]

REACTIONS (4)
  - CONDITION AGGRAVATED [None]
  - FATIGUE [None]
  - HYPERTENSION [None]
  - SOMNOLENCE [None]
